FAERS Safety Report 7084914-2 (Version None)
Quarter: 2010Q4

REPORT INFORMATION
  Report Type: 
  Country: None (occurrence: None)
  Receive Date: 20101105
  Receipt Date: 20101102
  Transmission Date: 20110411
  Serious: Yes (Hospitalization)
  Sender: FDA-Public Use
  Company Number: US-WYE-H18062210

PATIENT
  Sex: Female
  Weight: 64.47 kg

DRUGS (19)
  1. PRISTIQ [Suspect]
     Indication: DEPRESSION
     Route: 048
     Dates: start: 20091009, end: 20091222
  2. KLOR-CON [Concomitant]
     Route: 048
  3. SPIRONOLACTONE [Concomitant]
     Route: 048
  4. OXYBUTYNIN [Concomitant]
     Route: 048
  5. ERGOCALCIFEROL [Concomitant]
     Dosage: 50000 UNIT EVERY 1 WK
     Route: 048
  6. LISINOPRIL [Concomitant]
     Route: 048
  7. NORVASC [Concomitant]
     Route: 048
  8. FISH OIL, HYDROGENATED [Concomitant]
     Route: 048
  9. LASIX [Concomitant]
     Route: 048
  10. MS CONTIN [Concomitant]
     Route: 048
  11. NEURONTIN [Concomitant]
     Route: 048
  12. ALBUTEROL [Concomitant]
     Dosage: 1 PUFF EVERY 6 HOURS WHEN NECESSARY
     Route: 055
  13. CALCIUM CARBONATE [Concomitant]
     Dosage: UNKNOWN
  14. ASCORBIC ACID/ERGOCALCIFEROL/FOLIC ACID/NICOTINAMIDE/PANTHENOL/RETINOL [Concomitant]
     Dosage: UNKNOWN
  15. AMARYL [Concomitant]
     Route: 048
  16. ESTRADIOL [Concomitant]
     Route: 048
  17. ATENOLOL [Concomitant]
     Route: 048
  18. ZOCOR [Concomitant]
     Route: 048
  19. GLIMEPIRIDE [Concomitant]

REACTIONS (12)
  - FALL [None]
  - HYPERTENSION [None]
  - HYPOGLYCAEMIA [None]
  - LOSS OF CONSCIOUSNESS [None]
  - METABOLIC ACIDOSIS [None]
  - METABOLIC ENCEPHALOPATHY [None]
  - RENAL FAILURE ACUTE [None]
  - RESPIRATORY ACIDOSIS [None]
  - RHABDOMYOLYSIS [None]
  - SYNCOPE [None]
  - TOXIC ENCEPHALOPATHY [None]
  - URINARY TRACT INFECTION [None]
